FAERS Safety Report 19755076 (Version 1)
Quarter: 2021Q3

REPORT INFORMATION
  Report Type: Spontaneous
  Country: US (occurrence: US)
  Receive Date: 20210825
  Receipt Date: 20210825
  Transmission Date: 20211014
  Serious: No
  Sender: FDA-Public Use
  Company Number: None

PATIENT
  Age: 73 Year
  Sex: Male
  Weight: 96 kg

DRUGS (1)
  1. CIPROFLOXACIN (CIPROFLOXACIN 500MG TAB,SA) [Suspect]
     Active Substance: CIPROFLOXACIN
     Indication: URINARY TRACT INFECTION
     Route: 048
     Dates: start: 20210310, end: 20210323

REACTIONS (2)
  - Tendon pain [None]
  - Tendonitis [None]

NARRATIVE: CASE EVENT DATE: 20210430
